FAERS Safety Report 4972227-1 (Version None)
Quarter: 2006Q2

REPORT INFORMATION
  Report Type: 
  Country: None (occurrence: None)
  Receive Date: 20060413
  Receipt Date: 20060406
  Transmission Date: 20061013
  Serious: Yes (Hospitalization)
  Sender: FDA-Public Use
  Company Number: FR-GLAXOSMITHKLINE-B0420149A

PATIENT
  Age: 74 Year
  Sex: Male
  Weight: 80 kg

DRUGS (5)
  1. AUGMENTIN '125' [Suspect]
     Indication: COUGH
     Route: 048
     Dates: start: 20051206, end: 20051227
  2. VASTAREL [Concomitant]
     Indication: DIZZINESS
     Route: 065
  3. CLARITHROMYCIN [Concomitant]
     Indication: COUGH
     Route: 065
     Dates: start: 20051129, end: 20051205
  4. ROCEPHIN [Concomitant]
     Route: 065
     Dates: start: 20060129
  5. SOLU-MEDROL [Concomitant]
     Route: 065
     Dates: start: 20060129

REACTIONS (17)
  - ANOREXIA [None]
  - ASTHENIA [None]
  - BILIARY TRACT DISORDER [None]
  - BLOOD BILIRUBIN INCREASED [None]
  - BRONCHITIS ACUTE [None]
  - C-REACTIVE PROTEIN INCREASED [None]
  - CHEST PAIN [None]
  - DYSPNOEA [None]
  - EOSINOPHILIA [None]
  - HEPATITIS CHOLESTATIC [None]
  - HEPATOCELLULAR DAMAGE [None]
  - INFLAMMATION [None]
  - JAUNDICE [None]
  - NEUTROPHIL COUNT INCREASED [None]
  - PYREXIA [None]
  - TRANSAMINASES INCREASED [None]
  - WEIGHT DECREASED [None]
